FAERS Safety Report 9218606 (Version 1)
Quarter: 2013Q2

REPORT INFORMATION
  Report Type: Spontaneous
  Country: US (occurrence: US)
  Receive Date: 20130409
  Receipt Date: 20130409
  Transmission Date: 20140414
  Serious: Yes (Hospitalization)
  Sender: FDA-Public Use
  Company Number: US-009507513-1304USA001243

PATIENT
  Age: 17 Year
  Sex: Female
  Weight: 77 kg

DRUGS (2)
  1. CLARITIN [Suspect]
     Indication: HYPERSENSITIVITY
     Dosage: 10MG DAILY
     Route: 048
     Dates: start: 2000
  2. NALTREXONE [Concomitant]

REACTIONS (7)
  - Suicide attempt [Unknown]
  - Mental disorder [Unknown]
  - Psoriatic arthropathy [Unknown]
  - Borderline personality disorder [Unknown]
  - Obsessive-compulsive disorder [Unknown]
  - Post-traumatic stress disorder [Unknown]
  - Major depression [Unknown]
